FAERS Safety Report 19942342 (Version 1)
Quarter: 2021Q4

REPORT INFORMATION
  Report Type: Report from Study
  Country: CR (occurrence: CR)
  Receive Date: 20211011
  Receipt Date: 20211011
  Transmission Date: 20220303
  Serious: Yes (Other)
  Sender: FDA-Public Use
  Company Number: CR-NOVARTISPH-NVSC2021CR228658

PATIENT
  Age: 52 Year
  Sex: Male

DRUGS (2)
  1. EXFORGE [Suspect]
     Active Substance: AMLODIPINE BESYLATE\VALSARTAN
     Indication: Product used for unknown indication
     Dosage: 5/320 MG (STARTED APPROXIMATELY 12 YEARS AGO)
     Route: 065
  2. EXFORGE [Suspect]
     Active Substance: AMLODIPINE BESYLATE\VALSARTAN
     Dosage: 160/5 MG (PILL)
     Route: 065

REACTIONS (5)
  - Arrhythmia [Unknown]
  - Blood pressure increased [Unknown]
  - Stress [Unknown]
  - Weight decreased [Unknown]
  - Drug ineffective [Unknown]
